FAERS Safety Report 18050123 (Version 1)
Quarter: 2020Q3

REPORT INFORMATION
  Report Type: Other
  Country: EG (occurrence: EG)
  Receive Date: 20200721
  Receipt Date: 20200721
  Transmission Date: 20201103
  Serious: Yes (Other)
  Sender: FDA-Public Use
  Company Number: EG-ROCHE-2640603

PATIENT
  Age: 56 Year
  Sex: Female

DRUGS (3)
  1. LUCENTIS [Suspect]
     Active Substance: RANIBIZUMAB
     Dosage: 1 DF (ONCE EVERY 6 MONTHS)
     Route: 065
     Dates: start: 201803
  2. LUCENTIS [Suspect]
     Active Substance: RANIBIZUMAB
     Indication: AGE-RELATED MACULAR DEGENERATION
     Dosage: 1 DF, QMO (1ST  6 MONTHS)
     Route: 065
     Dates: start: 201703, end: 201703
  3. LUCENTIS [Suspect]
     Active Substance: RANIBIZUMAB
     Dosage: 1 DF (ONCE EVERY 2 MONTHS) ANOTHER 6 MONTHS
     Route: 065

REACTIONS (7)
  - Eye pain [Recovering/Resolving]
  - Vision blurred [Recovered/Resolved]
  - Headache [Recovered/Resolved]
  - Product dose omission issue [Unknown]
  - Retinal vascular disorder [Recovered/Resolved]
  - Anxiety [Not Recovered/Not Resolved]
  - Depressed mood [Recovering/Resolving]

NARRATIVE: CASE EVENT DATE: 201709
